FAERS Safety Report 4472239-0 (Version None)
Quarter: 2004Q4

REPORT INFORMATION
  Report Type: 
  Country: None (occurrence: None)
  Receive Date: 20041012
  Receipt Date: 20041006
  Transmission Date: 20050328
  Serious: Yes (Other)
  Sender: FDA-Public Use
  Company Number: US-MERCK-0410USA01002

PATIENT
  Age: 55 Year
  Sex: Female

DRUGS (7)
  1. GLUCOSAMINE [Concomitant]
     Route: 065
  2. ALEVE [Concomitant]
     Route: 065
  3. EVISTA [Concomitant]
     Route: 065
  4. VIOXX [Suspect]
     Indication: ARTHRALGIA
     Route: 048
  5. VIOXX [Suspect]
     Route: 048
     Dates: end: 20040801
  6. ZOCOR [Concomitant]
     Route: 065
  7. VITAMINS (UNSPECIFIED) [Concomitant]
     Route: 065

REACTIONS (2)
  - DRUG INEFFECTIVE [None]
  - NAUSEA [None]
